FAERS Safety Report 8623752-3 (Version None)
Quarter: 2012Q3

REPORT INFORMATION
  Report Type: 
  Country: None (occurrence: None)
  Receive Date: 20120827
  Receipt Date: 20120820
  Transmission Date: 20120928
  Serious: Yes (Death)
  Sender: FDA-Public Use
  Company Number: JP-BAYER-201013584BYL

PATIENT
  Age: 35 Year
  Sex: Male
  Weight: 68.3 kg

DRUGS (22)
  1. NEXAVAR [Suspect]
     Dosage: 200 MG (DAILY DOSE), , ORAL
     Route: 048
     Dates: start: 20100618, end: 20100619
  2. FENTANYL-100 [Concomitant]
     Route: 062
     Dates: start: 20100617, end: 20100719
  3. OXYCONTIN [Concomitant]
     Dosage: 10 MG (DAILY DOSE), , ORAL
     Route: 048
     Dates: start: 20100611, end: 20100616
  4. RESTAMIN [Concomitant]
     Route: 061
     Dates: start: 20100618, end: 20100619
  5. PRIMPERAN TAB [Concomitant]
     Dosage: 30 MG (DAILY DOSE), , INTRAVENOUS
     Route: 042
     Dates: start: 20100612, end: 20100612
  6. OMEPRAZOLE [Concomitant]
     Dosage: 10 MG (DAILY DOSE), , ORAL
     Route: 048
     Dates: start: 20091209, end: 20100709
  7. NEXAVAR [Suspect]
     Indication: HEPATIC NEOPLASM MALIGNANT
     Dosage: 400 MG (DAILY DOSE), , ORAL
     Route: 048
     Dates: start: 20100611, end: 20100617
  8. MAGMITT [Concomitant]
     Dosage: 1500 MG (DAILY DOSE), , ORAL
     Route: 048
     Dates: start: 20100318, end: 20100714
  9. ENTERONON R [Concomitant]
     Dosage: 3 G (DAILY DOSE), , ORAL
     Route: 048
     Dates: start: 20100411, end: 20100613
  10. CEFAZOLIN SODIUM [Concomitant]
     Dosage: 3 G (DAILY DOSE), , ORAL
     Route: 048
     Dates: start: 20100614, end: 20100618
  11. KETOPROFEN [Concomitant]
     Route: 061
     Dates: start: 20100606, end: 20100719
  12. CELECOXIB [Concomitant]
     Dosage: 200 MG (DAILY DOSE), , ORAL
     Route: 048
     Dates: start: 20100611, end: 20100619
  13. PURSENNID [Concomitant]
     Dosage: 12 MG (DAILY DOSE), , ORAL
     Route: 048
     Dates: start: 20100614, end: 20100620
  14. ZOMETA [Concomitant]
     Dosage: 4 MG (DAILY DOSE), , INTRAVENOUS
     Route: 042
     Dates: start: 20100615, end: 20100615
  15. BARACLUDE [Concomitant]
     Dosage: 0.5 MG (DAILY DOSE), , ORAL
     Route: 048
     Dates: start: 20091116, end: 20100719
  16. PROCHLORPERAZINE [Concomitant]
     Dosage: 15 MG (DAILY DOSE), , ORAL
     Route: 048
     Dates: start: 20100601, end: 20100630
  17. ACETAMINOPHEN [Concomitant]
     Dosage: 1200 MG (DAILY DOSE), , ORAL
     Route: 048
     Dates: start: 20100616, end: 20100619
  18. WYSTAL [Concomitant]
     Dosage: 2 G (DAILY DOSE), , INTRAVENOUS
     Route: 042
     Dates: start: 20100617, end: 20100625
  19. ENTERONON R [Concomitant]
     Dosage: 3 G (DAILY DOSE), , ORAL
     Route: 048
     Dates: start: 20100619, end: 20100627
  20. OXYCODONE HYDROCHLORIDE [Concomitant]
     Dosage: 2.5-7.5MG/DAY
     Route: 048
     Dates: start: 20100611, end: 20100719
  21. PRIMPERAN TAB [Concomitant]
     Dosage: 20 MG (DAILY DOSE), , INTRAVENOUS
     Route: 042
     Dates: start: 20100613, end: 20100613
  22. PRIMPERAN TAB [Concomitant]
     Dosage: 10 MG (DAILY DOSE), , INTRAVENOUS
     Route: 042
     Dates: start: 20100617, end: 20100617

REACTIONS (1)
  - HEPATIC FUNCTION ABNORMAL [None]
